FAERS Safety Report 4564584-5 (Version None)
Quarter: 2005Q1

REPORT INFORMATION
  Report Type: 
  Country: None (occurrence: None)
  Receive Date: 20050126
  Receipt Date: 20050113
  Transmission Date: 20050727
  Serious: Yes (Other)
  Sender: FDA-Public Use
  Company Number: 2005015298

PATIENT
  Sex: Female

DRUGS (1)
  1. PEGVISOMANT (PEGVISOMANT) [Suspect]
     Indication: ILL-DEFINED DISORDER

REACTIONS (3)
  - CEREBROVASCULAR ACCIDENT [None]
  - DEMYELINATION [None]
  - NUCLEAR MAGNETIC RESONANCE IMAGING ABNORMAL [None]
